FAERS Safety Report 5465247-4 (Version None)
Quarter: 2007Q3

REPORT INFORMATION
  Report Type: 
  Country: None (occurrence: None)
  Receive Date: 20070924
  Receipt Date: 20070918
  Transmission Date: 20080115
  Serious: Yes (Death, Other)
  Sender: FDA-Public Use
  Company Number: PHBS2007JP15381

PATIENT
  Age: 25 Year
  Sex: Male

DRUGS (2)
  1. RITALIN [Suspect]
     Indication: DEPRESSION
     Dates: end: 20050101
  2. RITALIN [Suspect]
     Dosage: 80 MG, ONCE/SINGLE
     Dates: start: 20050101, end: 20050101

REACTIONS (2)
  - COMPLETED SUICIDE [None]
  - DRUG DEPENDENCE [None]
